FAERS Safety Report 23857518 (Version 2)
Quarter: 2024Q2

REPORT INFORMATION
  Report Type: Spontaneous
  Country: CN (occurrence: CN)
  Receive Date: 20240515
  Receipt Date: 20240520
  Transmission Date: 20240716
  Serious: Yes (Hospitalization)
  Sender: FDA-Public Use
  Company Number: CN-PFIZER INC-PV202400062100

PATIENT
  Age: 79 Year
  Sex: Male
  Weight: 67.5 kg

DRUGS (2)
  1. AXITINIB [Suspect]
     Active Substance: AXITINIB
     Indication: Targeted cancer therapy
     Dosage: 5 MG, 2X/DAY
     Route: 048
     Dates: start: 20240409, end: 20240512
  2. TORIPALIMAB [Concomitant]
     Active Substance: TORIPALIMAB
     Indication: Targeted cancer therapy
     Dosage: UNK
     Dates: start: 20240409

REACTIONS (3)
  - Electrolyte imbalance [Recovered/Resolved]
  - Nausea [Recovering/Resolving]
  - Vomiting [Recovering/Resolving]

NARRATIVE: CASE EVENT DATE: 20240508
